FAERS Safety Report 18585892 (Version 1)
Quarter: 2020Q4

REPORT INFORMATION
  Report Type: Spontaneous
  Country: JP (occurrence: JP)
  Receive Date: 20201207
  Receipt Date: 20201207
  Transmission Date: 20210114
  Serious: Yes (Other)
  Sender: FDA-Public Use
  Company Number: JP-MYLANLABS-2020M1099513

PATIENT
  Age: 45 Year
  Sex: Male

DRUGS (2)
  1. CARBOPLATIN. [Suspect]
     Active Substance: CARBOPLATIN
     Indication: LUNG ADENOCARCINOMA STAGE III
     Dosage: DOSE: AREA UNDER THE CURVE 2; ADMINISTERED WEEKLY
     Route: 065
  2. PACLITAXEL. [Suspect]
     Active Substance: PACLITAXEL
     Indication: LUNG ADENOCARCINOMA STAGE III
     Route: 065

REACTIONS (6)
  - Constipation [Unknown]
  - Neutropenia [Unknown]
  - Lymphopenia [Unknown]
  - Nausea [Unknown]
  - Oesophagitis [Recovering/Resolving]
  - Leukopenia [Unknown]
